FAERS Safety Report 7305612-3 (Version None)
Quarter: 2011Q1

REPORT INFORMATION
  Report Type: 
  Country: None (occurrence: None)
  Receive Date: 20110222
  Receipt Date: 20110113
  Transmission Date: 20110831
  Serious: Yes (Hospitalization, Other)
  Sender: FDA-Public Use
  Company Number: JP-ROCHE-707545

PATIENT
  Age: 13 Year
  Sex: Female

DRUGS (35)
  1. VALGANCICLOVIR [Suspect]
     Dosage: DOSAGE REDUCED.
     Route: 048
     Dates: start: 20100513, end: 20100519
  2. BAKTAR [Suspect]
     Dosage: DAILY DOSE: 0.5 TABLET. DOSAGE REDUCED.
     Route: 048
     Dates: start: 20100513, end: 20100519
  3. RIBAVIRIN [Suspect]
     Indication: HEPATITIS C
     Route: 048
     Dates: start: 20100301
  4. PROGRAF [Suspect]
     Route: 048
     Dates: start: 20091127, end: 20100512
  5. LABETALOL HCL [Concomitant]
  6. SENSIPAR [Concomitant]
  7. VALGANCICLOVIR [Suspect]
     Indication: SMALL INTESTINE TRANSPLANT
     Dosage: DOSE FORM NOT REPORTED.
     Route: 048
     Dates: start: 20091127, end: 20100512
  8. EPOGEN [Suspect]
     Indication: RENAL FAILURE CHRONIC
     Dosage: 20,000 UNITS
     Route: 042
     Dates: start: 20070101
  9. ZEMPLAR [Concomitant]
     Dates: start: 20100113
  10. PRILOSEC [Concomitant]
  11. MIRAPEX [Concomitant]
  12. EPOGEN [Suspect]
     Dosage: DOSE: 28000 UNITS, DOSE INCREASED
     Route: 042
     Dates: end: 20100928
  13. ANGINAL [Concomitant]
     Route: 048
     Dates: start: 20091127, end: 20100513
  14. NEURONTIN [Concomitant]
     Dates: start: 20100113
  15. BENTYL [Concomitant]
  16. RENVELA [Concomitant]
  17. CIALIS [Concomitant]
  18. DIOVAN [Concomitant]
  19. TAKEPRON [Suspect]
     Route: 048
     Dates: start: 20091127
  20. PREDNISOLONE [Suspect]
     Route: 048
     Dates: start: 20100514, end: 20100518
  21. PREDNISOLONE [Suspect]
     Dosage: DECREASED; TAPERED EACH BY 5 MG AT THE INTERVAL OF 3 DAYS.
     Route: 048
     Dates: start: 20100525
  22. PROGRAF [Suspect]
     Dosage: REDUCED.
     Route: 048
     Dates: start: 20100513
  23. BIOFERMIN R [Concomitant]
     Dosage: FREQUENCY WAS NOT REPORTED.
     Route: 048
     Dates: start: 20091127
  24. PREDNISOLONE [Suspect]
     Route: 048
     Dates: start: 20091127, end: 20100513
  25. PREDNISOLONE [Suspect]
     Dosage: INCREASED.
     Route: 048
     Dates: end: 20100524
  26. PROGRAF [Suspect]
     Dosage: REDUCED.
     Route: 048
  27. AMLODIPINE [Concomitant]
     Dates: start: 20100113
  28. CODEINE [Concomitant]
  29. BAKTAR [Suspect]
     Indication: SMALL INTESTINE TRANSPLANT
     Dosage: DAILY DOSE: 1.25 TABLET
     Route: 048
     Dates: start: 20091127, end: 20100512
  30. FILGRASTIM [Suspect]
     Indication: SMALL INTESTINE TRANSPLANT
     Dosage: FORM AND FREQUENCY NOT PROVIDED.
     Route: 042
     Dates: start: 20100519, end: 20100522
  31. TYLENOL [Concomitant]
  32. AMBIEN [Concomitant]
  33. MYCOSYST [Suspect]
     Route: 048
     Dates: start: 20091127
  34. ACICLOVIR [Suspect]
     Indication: SMALL INTESTINE TRANSPLANT
     Dosage: DOSE AND FREQUENCY NOT PROVIDED. DRUG: VICCLOX.
     Route: 048
     Dates: start: 20091130
  35. ATARAX [Concomitant]

REACTIONS (13)
  - NEUTROPHIL COUNT DECREASED [None]
  - WEIGHT DECREASED [None]
  - NO THERAPEUTIC RESPONSE [None]
  - PNEUMONIA [None]
  - WHITE BLOOD CELL COUNT DECREASED [None]
  - RETROPERITONEAL HAEMORRHAGE [None]
  - HYPERLIPIDAEMIA [None]
  - STAPHYLOCOCCAL INFECTION [None]
  - MENISCUS LESION [None]
  - INGUINAL HERNIA REPAIR [None]
  - ANAEMIA [None]
  - HYPERPARATHYROIDISM SECONDARY [None]
  - FOLLICULITIS [None]
